FAERS Safety Report 15687408 (Version 1)
Quarter: 2018Q4

REPORT INFORMATION
  Report Type: Spontaneous
  Country: DE (occurrence: DE)
  Receive Date: 20181205
  Receipt Date: 20181205
  Transmission Date: 20190205
  Serious: Yes (Hospitalization, Congenital Anomaly, Other)
  Sender: FDA-Public Use
  Company Number: DE-ABBVIE-18K-062-2573604-00

PATIENT
  Age: 0 Year
  Sex: Female
  Weight: 3.45 kg

DRUGS (2)
  1. HUMIRA [Suspect]
     Active Substance: ADALIMUMAB
     Route: 063
  2. HUMIRA [Suspect]
     Active Substance: ADALIMUMAB
     Indication: MATERNAL EXPOSURE TIMING UNSPECIFIED
     Route: 064

REACTIONS (16)
  - Patent ductus arteriosus [Unknown]
  - Effusion [Unknown]
  - Pyrexia [Unknown]
  - Cyanosis [Unknown]
  - Foetal exposure during pregnancy [Unknown]
  - Transposition of the great vessels [Unknown]
  - Tachypnoea [Unknown]
  - Systemic infection [Unknown]
  - Drug withdrawal syndrome [Unknown]
  - Staphylococcal infection [Unknown]
  - Right ventricular dysfunction [Unknown]
  - Post procedural complication [Unknown]
  - Exposure via breast milk [Unknown]
  - Atrial septal defect [Unknown]
  - Condition aggravated [Unknown]
  - Enterococcal infection [Unknown]

NARRATIVE: CASE EVENT DATE: 2018
